FAERS Safety Report 23296240 (Version 1)
Quarter: 2023Q4

REPORT INFORMATION
  Report Type: Report from Study
  Country: ES (occurrence: ES)
  Receive Date: 20231214
  Receipt Date: 20231214
  Transmission Date: 20240110
  Serious: Yes (Life-Threatening)
  Sender: FDA-Public Use
  Company Number: None

PATIENT
  Age: 68 Year
  Sex: Male

DRUGS (6)
  1. APIXABAN [Interacting]
     Active Substance: APIXABAN
     Indication: Atrial fibrillation
     Dosage: 10 MILLIGRAM, QD
     Route: 048
     Dates: start: 202305, end: 20230806
  2. CIPROFLOXACIN HYDROCHLORIDE [Interacting]
     Active Substance: CIPROFLOXACIN HYDROCHLORIDE
     Indication: Pyelonephritis
     Dosage: 1 GRAM, QD
     Route: 048
     Dates: start: 20230801, end: 20230806
  3. ACETAMINOPHEN [Concomitant]
     Active Substance: ACETAMINOPHEN
     Indication: Body temperature increased
     Dosage: 2 GRAM, 1 TOTAL
     Route: 042
     Dates: start: 20230728, end: 20230731
  4. AZTREONAM [Concomitant]
     Active Substance: AZTREONAM
     Indication: Pyelonephritis
     Dosage: 3 GRAM, QD
     Route: 042
     Dates: start: 20230728, end: 20230731
  5. ATORVASTATIN [Concomitant]
     Active Substance: ATORVASTATIN
     Indication: Dyslipidaemia
     Dosage: 40 MILLIGRAM, QD
     Route: 048
     Dates: start: 202002
  6. BISOPROLOL [Concomitant]
     Active Substance: BISOPROLOL\BISOPROLOL FUMARATE
     Indication: Atrial fibrillation
     Dosage: 5 MILLIGRAM, QD
     Route: 048
     Dates: start: 202002

REACTIONS (2)
  - Upper gastrointestinal haemorrhage [Recovered/Resolved]
  - Drug interaction [Unknown]

NARRATIVE: CASE EVENT DATE: 20230802
